FAERS Safety Report 11091193 (Version 2)
Quarter: 2015Q3

REPORT INFORMATION
  Report Type: Spontaneous
  Country: US (occurrence: US)
  Receive Date: 20150505
  Receipt Date: 20150702
  Transmission Date: 20151125
  Serious: Yes (Death, Hospitalization)
  Sender: FDA-Public Use
  Company Number: US-PFIZER INC-2015150202

PATIENT
  Age: 83 Year
  Sex: Male
  Weight: 68 kg

DRUGS (1)
  1. SUTENT [Suspect]
     Active Substance: SUNITINIB MALATE
     Indication: PANCREATIC CARCINOMA
     Dosage: 10 MG, 2X/DAY

REACTIONS (6)
  - Disease progression [Unknown]
  - Pancreatic carcinoma [Unknown]
  - Death [Fatal]
  - Hypotension [Unknown]
  - Blood calcium decreased [Unknown]
  - Pain [Unknown]

NARRATIVE: CASE EVENT DATE: 20150529
